FAERS Safety Report 6974655-1 (Version None)
Quarter: 2010Q3

REPORT INFORMATION
  Report Type: 
  Country: None (occurrence: None)
  Receive Date: 20100909
  Receipt Date: 20100909
  Transmission Date: 20110219
  Serious: Yes (Death, Life-Threatening, Hospitalization, Disabling)
  Sender: FDA-Public Use
  Company Number: None

PATIENT
  Age: 44 Year
  Sex: Male
  Weight: 140.5 kg

DRUGS (2)
  1. LISINOPRIL [Suspect]
     Indication: HYPERTENSION
     Dosage: 40 MG EVERY DAY PO
     Route: 048
     Dates: start: 20051104, end: 20100716
  2. SULFAMETHOXAZOLE AND TRIMETHOPRIM [Suspect]
     Indication: SCROTAL ABSCESS
     Dosage: 1 TAB BID PO
     Route: 048
     Dates: start: 20100706, end: 20100716

REACTIONS (12)
  - ANGIOEDEMA [None]
  - BRAIN DEATH [None]
  - CARDIAC ARREST [None]
  - HYPOTENSION [None]
  - HYPOXIA [None]
  - HYPOXIC-ISCHAEMIC ENCEPHALOPATHY [None]
  - NO THERAPEUTIC RESPONSE [None]
  - PULSE ABSENT [None]
  - STRIDOR [None]
  - TACHYCARDIA [None]
  - TORSADE DE POINTES [None]
  - VENTRICULAR FIBRILLATION [None]
